FAERS Safety Report 4872970-9 (Version None)
Quarter: 2006Q1

REPORT INFORMATION
  Report Type: 
  Country: None (occurrence: None)
  Receive Date: 20060105
  Receipt Date: 20050613
  Transmission Date: 20060701
  Serious: Yes (Death)
  Sender: FDA-Public Use
  Company Number: US-BRISTOL-MYERS SQUIBB COMPANY-13005905

PATIENT
  Sex: Male

DRUGS (1)
  1. SERZONE [Suspect]
     Indication: DEPRESSION
     Dates: start: 19950101, end: 19970101

REACTIONS (1)
  - COMPLETED SUICIDE [None]
